FAERS Safety Report 6181414-9 (Version None)
Quarter: 2009Q2

REPORT INFORMATION
  Report Type: 
  Country: None (occurrence: None)
  Receive Date: 20090501
  Receipt Date: 20090415
  Transmission Date: 20091009
  Serious: Yes (Other)
  Sender: FDA-Public Use
  Company Number: PAR_02956_2009

PATIENT
  Sex: Female

DRUGS (14)
  1. IBUPROFEN [Suspect]
     Indication: DRUG USE FOR UNKNOWN INDICATION
     Dosage: (1800 MG)
     Dates: start: 20090207, end: 20090218
  2. RIVAROXABAN [Suspect]
     Indication: HIP ARTHROPLASTY
     Dosage: (DF ORAL)
     Route: 048
     Dates: start: 20090206, end: 20090218
  3. RIVAROXABAN [Suspect]
     Indication: THROMBOSIS PROPHYLAXIS
     Dosage: (DF ORAL)
     Route: 048
     Dates: start: 20090206, end: 20090218
  4. BLOPRESS [Concomitant]
  5. NEBILET [Concomitant]
  6. ZOP [Concomitant]
  7. TRIAMETEREN [Concomitant]
  8. SYNEUDON [Concomitant]
  9. ALLOPURINOL [Concomitant]
  10. PANTOZOL [Concomitant]
  11. NOVAMINSULFON [Concomitant]
  12. TUTOFUSIN [Concomitant]
  13. CEFAZOLIN [Concomitant]
  14. VALERIANA OFFICINALIS ROOT [Concomitant]

REACTIONS (3)
  - HAEMATOMA [None]
  - HAEMORRHAGE [None]
  - JOINT EFFUSION [None]
